FAERS Safety Report 11196392 (Version 2)
Quarter: 2015Q2

REPORT INFORMATION
  Report Type: Report from Study
  Country: US (occurrence: US)
  Receive Date: 20150617
  Receipt Date: 20150619
  Transmission Date: 20150821
  Serious: Yes (Death)
  Sender: FDA-Public Use
  Company Number: US-009507513-1506USA006430

PATIENT
  Age: 68 Year
  Sex: Female
  Weight: 66.6 kg

DRUGS (33)
  1. DEXTROSE. [Concomitant]
     Active Substance: DEXTROSE
     Indication: HYPOGLYCAEMIA
     Dosage: TOTAL DAILY DOSE 75G, PRN
     Route: 048
     Dates: start: 20150407, end: 20150409
  2. FERROUS SULFATE [Concomitant]
     Active Substance: FERROUS SULFATE\FERROUS SULFATE, DRIED
     Indication: ANAEMIA
     Dosage: 324 MG, BID
     Route: 048
     Dates: start: 20150403
  3. VITAMINS (UNSPECIFIED) [Concomitant]
     Active Substance: VITAMINS
     Dosage: 1 TABLET, QD
     Route: 048
     Dates: start: 20150404
  4. PREDNISONE. [Concomitant]
     Active Substance: PREDNISONE
     Dosage: 15 MG, QD
     Route: 048
     Dates: start: 20150408
  5. FENOFIBRATE. [Concomitant]
     Active Substance: FENOFIBRATE
     Dosage: 145 MG, QD
     Route: 048
     Dates: start: 20150404
  6. NOVOLOG [Concomitant]
     Active Substance: INSULIN ASPART
     Indication: HYPERGLYCAEMIA
     Dosage: TOTAL DAILY DOSE 10 U, PRN
     Route: 058
     Dates: start: 20150407
  7. MAGNESIUM OXIDE. [Concomitant]
     Active Substance: MAGNESIUM OXIDE
     Indication: HYPOMAGNESAEMIA
     Dosage: 400 MG, BID
     Route: 048
     Dates: start: 20150407, end: 20150411
  8. NYSTATIN. [Concomitant]
     Active Substance: NYSTATIN
     Dosage: 100000 U, BID
     Route: 061
     Dates: start: 20150407
  9. BLINDED POSACONAZOLE [Suspect]
     Active Substance: POSACONAZOLE
     Indication: ASPERGILLUS INFECTION
     Dosage: UNK
     Route: 042
     Dates: start: 20150409, end: 20150410
  10. CEFEPIME [Concomitant]
     Active Substance: CEFEPIME\CEFEPIME HYDROCHLORIDE
     Dosage: 1 G, TID
     Route: 042
     Dates: start: 20150404, end: 20150413
  11. METOPROLOL TARTRATE. [Concomitant]
     Active Substance: METOPROLOL TARTRATE
     Dosage: 25 MG, BID
     Route: 048
     Dates: start: 20150402
  12. OXYCODONE [Concomitant]
     Active Substance: OXYCODONE
     Indication: PAIN
     Dosage: 5 MG, QID
     Route: 048
     Dates: start: 20150408, end: 20150409
  13. OMEPRAZOLE. [Concomitant]
     Active Substance: OMEPRAZOLE
     Indication: GASTROOESOPHAGEAL REFLUX DISEASE
     Dosage: 20 MG, QD
     Route: 048
     Dates: start: 201201
  14. DOCUSATE SODIUM (+) SENNA [Concomitant]
     Indication: PROPHYLAXIS
     Dosage: 50 MG, BID
     Route: 048
     Dates: start: 20150402, end: 20150413
  15. BLINDED THERAPY [Suspect]
     Active Substance: INVESTIGATIONAL PRODUCT
     Indication: ASPERGILLUS INFECTION
     Dosage: UNK
     Route: 048
     Dates: start: 20150409, end: 20150410
  16. HYDROCORTISONE. [Concomitant]
     Active Substance: HYDROCORTISONE
     Dosage: 100 MG, ONCE
     Route: 042
     Dates: start: 20150407, end: 20150407
  17. PREDNISONE. [Concomitant]
     Active Substance: PREDNISONE
     Dosage: 17.5 MG, QD
     Route: 048
     Dates: start: 20120404
  18. ARGATROBAN. [Concomitant]
     Active Substance: ARGATROBAN
     Dosage: 50 MG, QD
     Route: 041
     Dates: start: 20150406, end: 20150406
  19. HEPARIN [Concomitant]
     Active Substance: HEPARIN SODIUM
     Dosage: 5000 U BID
     Route: 058
     Dates: start: 20150402
  20. METHOCARBAMOL. [Concomitant]
     Active Substance: METHOCARBAMOL
     Indication: BACK PAIN
     Dosage: 750 MG, QID
     Route: 048
     Dates: start: 20150408
  21. MORPHINE [Concomitant]
     Active Substance: MORPHINE
     Indication: PROCEDURAL PAIN
     Dosage: TOTAL DAILY DOSE 10 MG, PRN
     Route: 042
     Dates: start: 20150407, end: 20150413
  22. OXYBUTYNIN [Concomitant]
     Active Substance: OXYBUTYNIN
     Indication: HYPERTONIC BLADDER
     Dosage: 5 MG, TID
     Route: 048
     Dates: start: 20150408, end: 20150410
  23. VALGANCICLOVIR HYDROCHLORIDE [Concomitant]
     Active Substance: VALGANCICLOVIR HYDROCHLORIDE
     Indication: CYTOMEGALOVIRUS VIRAEMIA
     Dosage: 450 MG, BID
     Route: 048
     Dates: start: 20150403
  24. VORICONAZOLE. [Concomitant]
     Active Substance: VORICONAZOLE
     Dosage: 200 MG, BID
     Route: 048
     Dates: start: 20150408, end: 20150408
  25. ASPIRIN. [Concomitant]
     Active Substance: ASPIRIN
     Dosage: 81 MG, QD
     Route: 048
     Dates: start: 20150403, end: 20150406
  26. CLOTRIMAZOLE. [Concomitant]
     Active Substance: CLOTRIMAZOLE
     Dosage: 10 MG, QID
     Route: 048
     Dates: start: 20150402
  27. GLUCAGEN [Concomitant]
     Active Substance: GLUCAGON HYDROCHLORIDE
     Indication: HYPOGLYCAEMIA
     Dosage: TOTAL DAILY DOSE 1MG, PRN
     Route: 030
     Dates: start: 20150407, end: 20150409
  28. VANCOCIN [Concomitant]
     Active Substance: VANCOMYCIN HYDROCHLORIDE
     Dosage: 500 MG, BID
     Route: 042
     Dates: start: 20150404, end: 20150407
  29. LACTULOSE. [Concomitant]
     Active Substance: LACTULOSE
     Dosage: 20 MG, QID
     Route: 048
     Dates: start: 20150413
  30. MAGNESIUM SULFATE. [Concomitant]
     Active Substance: MAGNESIUM SULFATE
     Indication: HYPOMAGNESAEMIA
     Dosage: 2 MG, QID
     Route: 042
     Dates: start: 20150403, end: 20150403
  31. VORICONAZOLE. [Concomitant]
     Active Substance: VORICONAZOLE
     Dosage: 200 MG, BID
     Route: 048
     Dates: start: 20150413, end: 20150413
  32. HEPARIN [Concomitant]
     Active Substance: HEPARIN SODIUM
     Indication: THROMBOSIS PROPHYLAXIS
     Dosage: 5000 U TID
     Route: 058
     Dates: start: 20150407, end: 20150413
  33. VORICONAZOLE. [Concomitant]
     Active Substance: VORICONAZOLE
     Dosage: 310 MG, BID
     Route: 042
     Dates: start: 20150406, end: 20150408

REACTIONS (4)
  - Acute kidney injury [Fatal]
  - Septic shock [Fatal]
  - Infectious pleural effusion [Fatal]
  - Respiratory failure [Fatal]

NARRATIVE: CASE EVENT DATE: 20150415
